FAERS Safety Report 8991564 (Version 1)
Quarter: 2012Q4

REPORT INFORMATION
  Report Type: 
  Country: US (occurrence: US)
  Receive Date: 20121231
  Receipt Date: 20121231
  Transmission Date: 20130627
  Serious: No
  Sender: FDA-Public Use
  Company Number: US-BIOGENIDEC-2012BI063182

PATIENT
  Age: 56 None
  Sex: Female

DRUGS (1)
  1. TYSABRI [Suspect]
     Indication: MULTIPLE SCLEROSIS
     Route: 042
     Dates: start: 20110518

REACTIONS (10)
  - Hypoaesthesia [Not Recovered/Not Resolved]
  - Hearing impaired [Not Recovered/Not Resolved]
  - Poor quality sleep [Not Recovered/Not Resolved]
  - Overweight [Not Recovered/Not Resolved]
  - Central nervous system lesion [Unknown]
  - Fall [Recovered/Resolved]
  - Joint injury [Not Recovered/Not Resolved]
  - Eye pain [Not Recovered/Not Resolved]
  - Mechanical ventilation [Not Recovered/Not Resolved]
  - Fatigue [Not Recovered/Not Resolved]
